FAERS Safety Report 21227897 (Version 1)
Quarter: 2022Q3

REPORT INFORMATION
  Report Type: Spontaneous
  Country: US (occurrence: None)
  Receive Date: 20220817
  Receipt Date: 20220817
  Transmission Date: 20221027
  Serious: Yes (Hospitalization)
  Sender: FDA-Public Use
  Company Number: None

PATIENT
  Age: 75 Year
  Sex: Female

DRUGS (1)
  1. DEFERASIROX [Suspect]
     Active Substance: DEFERASIROX
     Dosage: FREQUENCY : DAILY;?
     Route: 048

REACTIONS (5)
  - Pyrexia [None]
  - Ageusia [None]
  - Asthenia [None]
  - Fatigue [None]
  - Skin ulcer [None]

NARRATIVE: CASE EVENT DATE: 20220803
